FAERS Safety Report 21273470 (Version 1)
Quarter: 2022Q3

REPORT INFORMATION
  Report Type: Spontaneous
  Country: DE (occurrence: DE)
  Receive Date: 20220831
  Receipt Date: 20220831
  Transmission Date: 20221027
  Serious: Yes (Other)
  Sender: FDA-Public Use
  Company Number: DE-ASTELLAS-2022US028753

PATIENT
  Age: 80 Year
  Sex: Male

DRUGS (1)
  1. ENFORTUMAB VEDOTIN [Suspect]
     Active Substance: ENFORTUMAB VEDOTIN
     Indication: Product used for unknown indication
     Dosage: UNK UNK, EVERY 2 WEEKS (6 DOSES PER WEEK DURATION 2.5 TO 3 MONTHS)
     Route: 065

REACTIONS (12)
  - Delirium [Unknown]
  - Nausea [Unknown]
  - Vomiting [Unknown]
  - Cognitive disorder [Unknown]
  - Fatigue [Unknown]
  - Weight decreased [Unknown]
  - Amnesia [Unknown]
  - Rash [Recovering/Resolving]
  - Decreased appetite [Unknown]
  - Alopecia [Unknown]
  - Mobility decreased [Unknown]
  - Inappropriate schedule of product administration [Unknown]
